FAERS Safety Report 17552235 (Version 4)
Quarter: 2020Q2

REPORT INFORMATION
  Report Type: Report from Study
  Country: CO (occurrence: CO)
  Receive Date: 20200317
  Receipt Date: 20200612
  Transmission Date: 20200713
  Serious: Yes (Hospitalization, Other)
  Sender: FDA-Public Use
  Company Number: CO-AMGEN-COLSL2020042430

PATIENT
  Age: 34 Year
  Sex: Male

DRUGS (2)
  1. NPLATE [Suspect]
     Active Substance: ROMIPLOSTIM
     Indication: IMMUNE THROMBOCYTOPENIA
     Dosage: 150 MICROGRAM, QWK
     Route: 058
     Dates: start: 20180925
  2. NPLATE [Suspect]
     Active Substance: ROMIPLOSTIM
     Dosage: 750 MICROGRAM, QWK
     Route: 058
     Dates: end: 20200421

REACTIONS (4)
  - Therapeutic product effect incomplete [Not Recovered/Not Resolved]
  - Thrombocytosis [Not Recovered/Not Resolved]
  - Thrombocytopenia [Recovering/Resolving]
  - Off label use [Not Recovered/Not Resolved]

NARRATIVE: CASE EVENT DATE: 20180925
